FAERS Safety Report 13702943 (Version 1)
Quarter: 2017Q2

REPORT INFORMATION
  Report Type: Spontaneous
  Country: US (occurrence: US)
  Receive Date: 20170629
  Receipt Date: 20170629
  Transmission Date: 20170830
  Serious: No
  Sender: FDA-Public Use
  Company Number: US-BAYER-2017-125924

PATIENT
  Sex: Female

DRUGS (1)
  1. ALEVE [Suspect]
     Active Substance: NAPROXEN SODIUM
     Indication: PAIN
     Dosage: 0.5 DF, BID
     Route: 048
     Dates: start: 20170628

REACTIONS (1)
  - Product use issue [Recovered/Resolved with Sequelae]

NARRATIVE: CASE EVENT DATE: 20170628
